FAERS Safety Report 9438301 (Version 2)
Quarter: 2014Q1

REPORT INFORMATION
  Report Type: Spontaneous
  Country: US (occurrence: US)
  Receive Date: 20130802
  Receipt Date: 20140116
  Transmission Date: 20141002
  Serious: Yes (Hospitalization)
  Sender: FDA-Public Use
  Company Number: US-B.I. PHARMACEUTICALS,INC./RIDGEFIELD-2013-BI-23027BP

PATIENT
  Sex: Male
  Weight: 108.86 kg

DRUGS (13)
  1. PRADAXA [Suspect]
     Dates: start: 20120215, end: 20120316
  2. PAROXETINE [Concomitant]
  3. OXYCODONE [Concomitant]
  4. WARFARIN [Concomitant]
  5. KLOR-CON [Concomitant]
  6. PRAVASTATIN SODIUM [Concomitant]
  7. PANTAPRAZOLE [Concomitant]
  8. ENALAPRIL MALEATE [Concomitant]
  9. METOPROLOL [Concomitant]
  10. SPIRONOLACTONE [Concomitant]
  11. ISOSORBIDE [Concomitant]
  12. HYDROCORTISONE [Concomitant]
  13. FUROSEMIDE [Concomitant]
     Dates: start: 2008, end: 2012

REACTIONS (1)
  - Haemorrhage [Unknown]
